FAERS Safety Report 6358319-3 (Version None)
Quarter: 2009Q3

REPORT INFORMATION
  Report Type: 
  Country: None (occurrence: None)
  Receive Date: 20090916
  Receipt Date: 20090914
  Transmission Date: 20100115
  Serious: Yes (Death, Other)
  Sender: FDA-Public Use
  Company Number: PHHY2008GB06906

PATIENT
  Age: 27 Year
  Sex: Male

DRUGS (1)
  1. CLOZAPINE [Suspect]
     Indication: SCHIZOPHRENIA
     Dosage: 300 MG/DAY
     Route: 048
     Dates: start: 20050909

REACTIONS (5)
  - COLITIS ISCHAEMIC [None]
  - CONSTIPATION [None]
  - INTESTINAL OBSTRUCTION [None]
  - PSEUDOMEMBRANOUS COLITIS [None]
  - SEPSIS [None]
